FAERS Safety Report 4288515-0 (Version None)
Quarter: 2004Q1

REPORT INFORMATION
  Report Type: 
  Country: None (occurrence: None)
  Receive Date: 20040205
  Receipt Date: 20040116
  Transmission Date: 20041129
  Serious: No
  Sender: FDA-Public Use
  Company Number: JP_040102495

PATIENT
  Age: 50 Year
  Sex: Female

DRUGS (4)
  1. ZYPREXA [Suspect]
     Indication: SCHIZOPHRENIA
  2. RISPERDAL [Concomitant]
  3. SILECE (FLUNITRAZEPAM) [Concomitant]
  4. AKINETON [Concomitant]

REACTIONS (2)
  - EPISTAXIS [None]
  - SCAB [None]
